FAERS Safety Report 5322910-3 (Version None)
Quarter: 2007Q1

REPORT INFORMATION
  Report Type: 
  Country: None (occurrence: None)
  Receive Date: 20070222
  Receipt Date: 20060920
  Transmission Date: 20070707
  Serious: Yes (Life-Threatening, Hospitalization, Other)
  Sender: FDA-Public Use
  Company Number: 2006091218

PATIENT
  Age: 85 Year
  Sex: Female
  Weight: 81.1939 kg

DRUGS (1)
  1. CORVERT [Suspect]
     Indication: ATRIAL FIBRILLATION
     Dosage: 0.4 MG (0.4 MG, FREQUENCY: ONCE), INTRAVENOUS
     Route: 042
     Dates: start: 20060720, end: 20060720

REACTIONS (2)
  - ELECTROCARDIOGRAM QT PROLONGED [None]
  - TORSADE DE POINTES [None]
